FAERS Safety Report 8474862-5 (Version None)
Quarter: 2012Q2

REPORT INFORMATION
  Report Type: 
  Country: None (occurrence: None)
  Receive Date: 20120628
  Receipt Date: 20120622
  Transmission Date: 20120825
  Serious: Yes (Other)
  Sender: FDA-Public Use
  Company Number: VE-PFIZER INC-2012145957

PATIENT
  Age: 71 Year
  Sex: Female

DRUGS (6)
  1. PLAVIX [Concomitant]
     Indication: HYPERTENSION
     Dosage: 75 MG, 1X/DAY
     Route: 048
  2. DAZOLIN [Concomitant]
     Indication: DEMENTIA ALZHEIMER'S TYPE
     Dosage: UNK
     Route: 048
  3. ACTONEL [Concomitant]
     Indication: BONE PAIN
     Dosage: UNK
     Route: 048
  4. LIPITOR [Suspect]
     Indication: CATHETERISATION CARDIAC
     Dosage: 40 MG, 1X/DAY
     Route: 048
     Dates: start: 20110101
  5. CORAZEM [Concomitant]
     Indication: HYPERTENSION
     Dosage: UNK
     Route: 048
  6. MEMANTINE HYDROCHLORIDE [Concomitant]
     Indication: DEMENTIA ALZHEIMER'S TYPE
     Dosage: UNK
     Route: 048

REACTIONS (1)
  - CARDIAC DISORDER [None]
